FAERS Safety Report 4627812-3 (Version None)
Quarter: 2005Q2

REPORT INFORMATION
  Report Type: 
  Country: None (occurrence: None)
  Receive Date: 20050401
  Receipt Date: 20050323
  Transmission Date: 20051028
  Serious: Yes (Life-Threatening, Hospitalization)
  Sender: FDA-Public Use
  Company Number: 2005009993

PATIENT
  Age: 62 Year
  Sex: Female
  Weight: 50 kg

DRUGS (11)
  1. CELEBREX [Suspect]
     Indication: OSTEOARTHRITIS
     Dosage: 400 MG (400 MG, 1 IN 1 D), ORAL
     Route: 048
     Dates: start: 20010901
  2. ESTRADIOL [Suspect]
     Indication: MENOPAUSE
     Dosage: 2.5 GRAM (1 IN 1 D)
     Dates: start: 19980101
  3. ASCORBIC ACID (VIT C), INCL COMBINATIONS (ASCORBIC ACID (VIT C), INCL [Concomitant]
  4. DRUG, UNSPECIFIED (DRUG, UNSPECIFIED) [Concomitant]
  5. GINKGO BILOBA (GINKGO BILOBA) [Concomitant]
  6. PROGESTERONE [Concomitant]
  7. CRATAEGUS (CRATAEGUS) [Concomitant]
  8. ALL OTHER THERAPEUTIC PRODUCTS (ALL OTHER THERAPEUTIC PRODUCTS) [Concomitant]
  9. KETOPROFEN [Concomitant]
  10. MOMETASONE FUROATE [Concomitant]
  11. MAXEPA (CITRIC ACID, FATTY ACIDS NOS, GLUCOSE, INSULIN, INSULIN HUMAN [Concomitant]

REACTIONS (2)
  - DRUG INTERACTION [None]
  - MYOCARDIAL INFARCTION [None]
